FAERS Safety Report 25043955 (Version 1)
Quarter: 2025Q1

REPORT INFORMATION
  Report Type: Report from Study
  Country: US (occurrence: US)
  Receive Date: 20250306
  Receipt Date: 20250306
  Transmission Date: 20250408
  Serious: No
  Sender: SUNOVION
  Company Number: US-SMPA-2025SPA001572AA

PATIENT

DRUGS (15)
  1. ORGOVYX [Suspect]
     Active Substance: RELUGOLIX
     Indication: Prostate cancer
     Route: 048
  2. ORGOVYX [Suspect]
     Active Substance: RELUGOLIX
     Dosage: 120 MG, QD
     Route: 048
  3. CALCIUM CARBONATE\VITAMIN D [Concomitant]
     Active Substance: CALCIUM CARBONATE\VITAMIN D
     Route: 048
  4. CARVEDILOL [Concomitant]
     Active Substance: CARVEDILOL
     Route: 048
  5. VITAMINS [Concomitant]
     Active Substance: VITAMINS
     Route: 048
  6. DIMETHYL SULFOXIDE [Concomitant]
     Active Substance: DIMETHYL SULFOXIDE
     Route: 065
  7. DORYX MPC [Concomitant]
     Active Substance: DOXYCYCLINE HYCLATE
     Route: 048
  8. ELIGARD [Concomitant]
     Active Substance: LEUPROLIDE ACETATE
     Route: 065
  9. ENTRESTO [Concomitant]
     Active Substance: SACUBITRIL\VALSARTAN
     Route: 048
  10. EXCEDRIN EXTRA STRENGTH [Concomitant]
     Active Substance: ACETAMINOPHEN\ASPIRIN\CAFFEINE
     Route: 048
  11. FERROUS SULFATE [Concomitant]
     Active Substance: FERROUS SULFATE
     Route: 048
  12. FUROSEMIDE [Concomitant]
     Active Substance: FUROSEMIDE
     Route: 048
  13. IMITREX [Concomitant]
     Active Substance: SUMATRIPTAN SUCCINATE
     Route: 048
  14. LISINOPRIL [Concomitant]
     Active Substance: LISINOPRIL
     Route: 048
  15. NUBEQA [Concomitant]
     Active Substance: DAROLUTAMIDE
     Route: 065

REACTIONS (4)
  - Dyspnoea [Unknown]
  - Balance disorder [Unknown]
  - Dizziness [Unknown]
  - Hot flush [Unknown]
